FAERS Safety Report 6199912 (Version 32)
Quarter: 2014Q1

REPORT INFORMATION
  Report Type: Spontaneous
  Country: US (occurrence: US)
  Receive Date: 20061221
  Receipt Date: 20140321
  Transmission Date: 20141002
  Serious: Yes (Hospitalization, Other)
  Sender: FDA-Public Use
  Company Number: PHEH2006US15179

PATIENT
  Age: 64 Year
  Sex: Male

DRUGS (24)
  1. ALBUTEROL [Concomitant]
  2. ATROVENT [Concomitant]
  3. GLUCOVANCE [Concomitant]
  4. DEXAMETHASONE [Concomitant]
  5. VIAGRA [Concomitant]
  6. ZOMETA [Suspect]
     Dosage: 4 MG
     Route: 042
     Dates: start: 2005, end: 20051014
  7. CORTICOSTEROIDS [Suspect]
     Route: 045
  8. HYDROCHLOROTHIAZIDE [Concomitant]
     Indication: BLOOD PRESSURE
     Dosage: 25 MG,
     Route: 048
  9. ACYCLOVIR [Concomitant]
     Dosage: 800 MG,
     Route: 048
  10. ASPIRIN [Concomitant]
     Route: 048
  11. GLYBURIDE [Concomitant]
     Indication: DIABETES MELLITUS
     Dosage: 3 MG, QD
     Route: 048
  12. LISINOPRIL [Concomitant]
     Indication: BLOOD PRESSURE
     Dosage: 10 MG,
  13. METFORMIN [Concomitant]
     Indication: DIABETES MELLITUS
     Route: 048
  14. NASACORT [Concomitant]
  15. LORATADINE [Concomitant]
  16. DOXYCYCLINE [Concomitant]
  17. DYNA-HEX [Concomitant]
  18. ERYTHROMYCIN [Concomitant]
  19. ACETAMINOPHEN [Concomitant]
  20. CALCIUM CARBONATE [Concomitant]
  21. CLARITIN [Concomitant]
  22. GLUCOSAMINE W/CHONDROITIN [Concomitant]
  23. VITAMIN D [Concomitant]
  24. MELOXICAM [Concomitant]

REACTIONS (128)
  - Plasma cell myeloma [Unknown]
  - Bone lesion [Unknown]
  - Osteonecrosis of jaw [Recovered/Resolved]
  - General physical health deterioration [Unknown]
  - Pain [Unknown]
  - Anxiety [Unknown]
  - Decreased interest [Unknown]
  - Chest pain [Unknown]
  - Oral disorder [Unknown]
  - Tooth deposit [Unknown]
  - Bone loss [Unknown]
  - Tooth loss [Unknown]
  - Intervertebral disc space narrowing [Unknown]
  - Nasal septum deviation [Unknown]
  - Dermatitis contact [Unknown]
  - Hepatic enzyme increased [Unknown]
  - Rash [Unknown]
  - Deafness neurosensory [Unknown]
  - Tinnitus [Unknown]
  - Herpes zoster [Unknown]
  - Sinusitis [Unknown]
  - Calculus ureteric [Unknown]
  - Hydronephrosis [Unknown]
  - Pneumonia [Unknown]
  - Colon adenoma [Unknown]
  - Large intestine polyp [Unknown]
  - Synovial cyst [Unknown]
  - Meniscus injury [Unknown]
  - Haemochromatosis [Unknown]
  - Renal colic [Unknown]
  - Hyperglycaemia [Unknown]
  - Hypoglycaemia [Unknown]
  - Hypogonadism [Unknown]
  - Scoliosis [Unknown]
  - Post-traumatic stress disorder [Unknown]
  - Nephrolithiasis [Unknown]
  - Erectile dysfunction [Recovered/Resolved]
  - Constipation [Recovering/Resolving]
  - Fatigue [Unknown]
  - Anaemia [Unknown]
  - Leukopenia [Unknown]
  - Osteoporosis [Unknown]
  - Bronchitis [Unknown]
  - Vitamin D deficiency [Unknown]
  - Cerumen impaction [Unknown]
  - Muscle strain [Unknown]
  - Exposed bone in jaw [Unknown]
  - Tongue injury [Unknown]
  - Monoclonal gammopathy [Unknown]
  - Arthralgia [Unknown]
  - Tendonitis [Unknown]
  - Lung infiltration [Unknown]
  - Malaria [Unknown]
  - Pyrexia [Unknown]
  - Myalgia [Unknown]
  - Asthma [Unknown]
  - Rhinitis perennial [Unknown]
  - Drug intolerance [Unknown]
  - Lipodystrophy acquired [Unknown]
  - Calcinosis [Unknown]
  - Haemangioma of liver [Unknown]
  - Hepatic steatosis [Unknown]
  - Increased upper airway secretion [Unknown]
  - Urinary tract infection [Unknown]
  - Back pain [Unknown]
  - Muscle spasms [Unknown]
  - Ligament disorder [Unknown]
  - Spinal osteoarthritis [Unknown]
  - Upper respiratory tract infection [Unknown]
  - Wheezing [Unknown]
  - Otitis media [Unknown]
  - Conjunctival cyst [Unknown]
  - Bone pain [Unknown]
  - Bone swelling [Unknown]
  - Oropharyngeal pain [Unknown]
  - Cough [Unknown]
  - Presbyopia [Unknown]
  - Blindness [Unknown]
  - Malaise [Unknown]
  - Otitis externa [Unknown]
  - Conjunctivitis [Unknown]
  - Ear pain [Unknown]
  - Otorrhoea [Unknown]
  - Intervertebral disc protrusion [Unknown]
  - Vertebral foraminal stenosis [Unknown]
  - Swelling face [Unknown]
  - Sialoadenitis [Unknown]
  - Exostosis [Unknown]
  - Foot fracture [Unknown]
  - Occult blood positive [Unknown]
  - Osteonecrosis [Unknown]
  - Spinal deformity [Unknown]
  - Joint effusion [Unknown]
  - Atelectasis [Unknown]
  - Hepatic lesion [Unknown]
  - Lymphadenopathy mediastinal [Unknown]
  - Osteopenia [Unknown]
  - Toothache [Unknown]
  - Musculoskeletal chest pain [Unknown]
  - Hyperkeratosis [Unknown]
  - Oedema peripheral [Unknown]
  - Osteoarthritis [Unknown]
  - Arthropathy [Unknown]
  - Osteosclerosis [Unknown]
  - Musculoskeletal pain [Unknown]
  - Pulmonary granuloma [Unknown]
  - Hypoaesthesia [Unknown]
  - Upper limb fracture [Unknown]
  - Facial bones fracture [Unknown]
  - Wrist fracture [Unknown]
  - Periodontitis [Unknown]
  - Ecchymosis [Unknown]
  - Febrile neutropenia [Unknown]
  - Tongue ulceration [Unknown]
  - Bone cancer [Unknown]
  - Osteitis [Unknown]
  - Fall [Unknown]
  - Arthropod bite [Unknown]
  - Mass [Unknown]
  - Seborrhoeic keratosis [Unknown]
  - Pulmonary fibrosis [Unknown]
  - Cerebral atrophy [Unknown]
  - Cerebral small vessel ischaemic disease [Unknown]
  - Influenza [Unknown]
  - Headache [Unknown]
  - Vomiting [Unknown]
  - Asthenia [Unknown]
  - Dizziness [Unknown]
